FAERS Safety Report 8578074-6 (Version None)
Quarter: 2012Q3

REPORT INFORMATION
  Report Type: 
  Country: None (occurrence: None)
  Receive Date: 20120808
  Receipt Date: 20120803
  Transmission Date: 20120928
  Serious: Yes (Other)
  Sender: FDA-Public Use
  Company Number: PHHY2010CA01048

PATIENT
  Sex: Female

DRUGS (3)
  1. ZOLEDRONOC ACID [Suspect]
     Route: 042
     Dates: start: 20101229
  2. ZOLEDRONOC ACID [Suspect]
     Route: 042
     Dates: start: 20120208
  3. ZOLEDRONOC ACID [Suspect]
     Indication: OSTEOPOROSIS
     Route: 042
     Dates: start: 20091216

REACTIONS (3)
  - BREAST PAIN [None]
  - AXILLARY MASS [None]
  - B-CELL LYMPHOMA [None]
